FAERS Safety Report 7508458-6 (Version None)
Quarter: 2011Q2

REPORT INFORMATION
  Report Type: 
  Country: None (occurrence: None)
  Receive Date: 20110527
  Receipt Date: 20110517
  Transmission Date: 20111010
  Serious: Yes (Other)
  Sender: FDA-Public Use
  Company Number: GB-NOVOPROD-327523

PATIENT
  Age: 17 Year
  Sex: Female
  Weight: 73 kg

DRUGS (2)
  1. NOVOLOG [Concomitant]
     Indication: PRODUCT USED FOR UNKNOWN INDICATION
     Dosage: 120 IU, QD
     Route: 058
     Dates: start: 20070101
  2. LEVEMIR [Suspect]
     Indication: PRODUCT USED FOR UNKNOWN INDICATION
     Dosage: 54 IU, QD
     Route: 058
     Dates: start: 20110415, end: 20110427

REACTIONS (3)
  - INJECTION SITE URTICARIA [None]
  - HYPERGLYCAEMIA [None]
  - BLOOD KETONE BODY [None]
